FAERS Safety Report 25643588 (Version 3)
Quarter: 2025Q3

REPORT INFORMATION
  Report Type: Report from Study
  Country: US (occurrence: US)
  Receive Date: 20250805
  Receipt Date: 20250918
  Transmission Date: 20251021
  Serious: Yes (Hospitalization, Other)
  Sender: ALEXION PHARMACEUTICALS
  Company Number: US-AstraZeneca-CH-00921005A

PATIENT
  Age: 58 Year
  Sex: Male
  Weight: 77.098 kg

DRUGS (1)
  1. ULTOMIRIS [Suspect]
     Active Substance: RAVULIZUMAB-CWVZ
     Indication: Neuromyelitis optica spectrum disorder

REACTIONS (9)
  - Encephalitis [Recovered/Resolved]
  - Muscular weakness [Not Recovered/Not Resolved]
  - Somnolence [Not Recovered/Not Resolved]
  - Fatigue [Unknown]
  - Feeling abnormal [Unknown]
  - Culture urine positive [Unknown]
  - Procalcitonin increased [Unknown]
  - Nitrite urine present [Unknown]
  - White blood cells urine abnormal [Unknown]

NARRATIVE: CASE EVENT DATE: 20250625
